FAERS Safety Report 18080648 (Version 2)
Quarter: 2020Q3

REPORT INFORMATION
  Report Type: Report from Study
  Country: None (occurrence: DE)
  Receive Date: 20200728
  Receipt Date: 20200918
  Transmission Date: 20201103
  Serious: Yes (Death, Hospitalization)
  Sender: FDA-Public Use
  Company Number: DE-ABBVIE-20K-062-3499970-00

PATIENT
  Age: 85 Year
  Sex: Female
  Weight: 48 kg

DRUGS (9)
  1. DUODOPA [Suspect]
     Active Substance: CARBIDOPA\LEVODOPA
     Dosage: FREQUENCY TEXT? FROM 06:15 TILL 20:30
     Route: 050
     Dates: start: 20190604
  2. L?THYROX [Concomitant]
     Active Substance: LEVOTHYROXINE SODIUM
     Indication: PRODUCT USED FOR UNKNOWN INDICATION
     Dosage: L?THYROX HEXAL
  3. LEVOCOMP [Concomitant]
     Active Substance: CARBIDOPA\LEVODOPA
     Indication: PRODUCT USED FOR UNKNOWN INDICATION
     Dosage: 100/25?LEVOCOMP RETARD
  4. LEVETIRACETAM. [Concomitant]
     Active Substance: LEVETIRACETAM
     Indication: PRODUCT USED FOR UNKNOWN INDICATION
  5. HCT AAA [Concomitant]
     Indication: PRODUCT USED FOR UNKNOWN INDICATION
  6. QUETIAPIN [Concomitant]
     Active Substance: QUETIAPINE
     Indication: PRODUCT USED FOR UNKNOWN INDICATION
     Dosage: FREQUENCY? 1.5 IN 1 DAYS
  7. CANDESARTAN. [Concomitant]
     Active Substance: CANDESARTAN
     Indication: PRODUCT USED FOR UNKNOWN INDICATION
     Dosage: CANDESARTAN ZENTIVA
  8. DUODOPA [Suspect]
     Active Substance: CARBIDOPA\LEVODOPA
     Indication: PARKINSON^S DISEASE
     Dosage: MD 5.0 ML, CRD 1.7 ML/H; ED 3.0 ML
     Route: 050
     Dates: start: 20180724
  9. VIGANTOL [Concomitant]
     Indication: PRODUCT USED FOR UNKNOWN INDICATION

REACTIONS (6)
  - Hospitalisation [Unknown]
  - Blood cholesterol increased [Unknown]
  - Malnutrition [Unknown]
  - Cachexia [Fatal]
  - C-reactive protein increased [Unknown]
  - Fluid intake reduced [Unknown]

NARRATIVE: CASE EVENT DATE: 20200127
